FAERS Safety Report 7731939-7 (Version None)
Quarter: 2011Q3

REPORT INFORMATION
  Report Type: 
  Country: None (occurrence: None)
  Receive Date: 20110906
  Receipt Date: 20110715
  Transmission Date: 20111222
  Serious: No
  Sender: FDA-Public Use
  Company Number: US-AMGEN-USASP2011036195

PATIENT
  Sex: Female

DRUGS (9)
  1. PROLIA [Suspect]
     Indication: OSTEOPOROSIS POSTMENOPAUSAL
     Dosage: 60 MG, Q6MO
     Dates: start: 20110126
  2. PRAVASTATIN [Concomitant]
     Dosage: UNK
  3. TRAMADOL HYDROCHLORIDE [Concomitant]
     Dosage: UNK
  4. CALCIUM WITH VITAMIN D             /00944201/ [Concomitant]
     Dosage: UNK
  5. INSULIN [Concomitant]
     Dosage: UNK
  6. LISINOPRIL [Concomitant]
     Dosage: UNK
  7. AMLODIPINE [Concomitant]
     Dosage: UNK
  8. CLONIDINE [Concomitant]
     Dosage: UNK
  9. AMIODARONE HCL [Concomitant]
     Dosage: UNK

REACTIONS (3)
  - RASH MACULO-PAPULAR [None]
  - SKIN CHAPPED [None]
  - ARTHROPOD BITE [None]
